FAERS Safety Report 14714969 (Version 2)
Quarter: 2018Q2

REPORT INFORMATION
  Report Type: Spontaneous
  Country: US (occurrence: US)
  Receive Date: 20180404
  Receipt Date: 20180426
  Transmission Date: 20180711
  Serious: No
  Sender: FDA-Public Use
  Company Number: US-PFIZER INC-2018135530

PATIENT
  Age: 63 Year
  Sex: Male

DRUGS (4)
  1. PROTOZONE [Concomitant]
     Indication: PAIN
     Dosage: 5 MG, 1X/DAY
     Dates: start: 201710
  2. XELJANZ [Suspect]
     Active Substance: TOFACITINIB CITRATE
     Indication: RHEUMATOID ARTHRITIS
     Dosage: 5 MG, 2X/DAY
     Dates: start: 201708
  3. BABY ASPIRIN [Concomitant]
     Active Substance: ASPIRIN
     Dosage: 82 MG, 1X/DAY; [1 DAY]
     Dates: start: 2015
  4. VITAMIN D [Concomitant]
     Active Substance: CHOLECALCIFEROL
     Indication: IMMUNE ENHANCEMENT THERAPY
     Dosage: UNK
     Dates: start: 201801

REACTIONS (6)
  - Intentional product misuse [Unknown]
  - Abdominal discomfort [Unknown]
  - Insomnia [Unknown]
  - Pollakiuria [Unknown]
  - Dysgeusia [Unknown]
  - Dry eye [Unknown]
